FAERS Safety Report 10366831 (Version 3)
Quarter: 2015Q2

REPORT INFORMATION
  Report Type: Spontaneous
  Country: US (occurrence: US)
  Receive Date: 20140807
  Receipt Date: 20150626
  Transmission Date: 20150821
  Serious: Yes (Other)
  Sender: FDA-Public Use
  Company Number: US-UCBSA-2014007515

PATIENT
  Sex: Female

DRUGS (4)
  1. VIMPAT [Suspect]
     Active Substance: LACOSAMIDE
     Dosage: 200MG/4 DAYS
  2. VIMPAT [Suspect]
     Active Substance: LACOSAMIDE
     Dosage: 400 MG, 2X/DAY (BID)
  3. VIMPAT [Suspect]
     Active Substance: LACOSAMIDE
     Indication: SEIZURE
     Dosage: 150 MG, 2X/DAY (BID)
  4. LAMICTAL [Concomitant]
     Active Substance: LAMOTRIGINE
     Indication: SEIZURE
     Dosage: 400 MG, 2X/DAY (BID)

REACTIONS (2)
  - Overdose [Unknown]
  - Seizure [Not Recovered/Not Resolved]
